FAERS Safety Report 7801462-X (Version None)
Quarter: 2011Q4

REPORT INFORMATION
  Report Type: 
  Country: None (occurrence: None)
  Receive Date: 20111007
  Receipt Date: 20110928
  Transmission Date: 20120403
  Serious: Yes (Hospitalization, Other)
  Sender: FDA-Public Use
  Company Number: JP-BAYER-2011-086671

PATIENT
  Age: 75 Year
  Sex: Male

DRUGS (3)
  1. NEXAVAR [Suspect]
     Indication: METASTASES TO LIVER
  2. NEXAVAR [Suspect]
     Indication: METASTATIC RENAL CELL CARCINOMA
     Dosage: 400 MG, QD
     Route: 048
     Dates: start: 20100210
  3. PREDNISOLONE [Suspect]
     Indication: OPTIC NEURITIS
     Dosage: UNK
     Route: 065
     Dates: start: 20110201

REACTIONS (3)
  - OPTIC NEURITIS [None]
  - NEPHROTIC SYNDROME [None]
  - GASTRIC ULCER HAEMORRHAGE [None]
